FAERS Safety Report 15698675 (Version 1)
Quarter: 2018Q4

REPORT INFORMATION
  Report Type: Spontaneous
  Country: US (occurrence: US)
  Receive Date: 20181207
  Receipt Date: 20181207
  Transmission Date: 20190205
  Serious: No
  Sender: FDA-Public Use
  Company Number: US-BIOGEN-2018BI00668420

PATIENT
  Sex: Female

DRUGS (1)
  1. TYSABRI [Suspect]
     Active Substance: NATALIZUMAB
     Indication: MULTIPLE SCLEROSIS
     Route: 065
     Dates: start: 20170221, end: 20180504

REACTIONS (6)
  - Incontinence [Unknown]
  - Anxiety [Unknown]
  - Fall [Unknown]
  - Feeling abnormal [Unknown]
  - Emotional distress [Unknown]
  - Nervousness [Unknown]
